FAERS Safety Report 4684569-8 (Version None)
Quarter: 2005Q2

REPORT INFORMATION
  Report Type: 
  Country: None (occurrence: None)
  Receive Date: 20050603
  Receipt Date: 20050524
  Transmission Date: 20051028
  Serious: Yes (Death)
  Sender: FDA-Public Use
  Company Number: HQWYE986826MAY05

PATIENT

DRUGS (1)
  1. CORDARONE [Suspect]
     Indication: ATRIAL FIBRILLATION
     Dosage: 800 MG DAILY X 1ST 14 DAYS, 600 MG DAILY X 14 DAYS, 300 MG DAILY X 1ST YEAR, THAN 200 MG DAILY

REACTIONS (1)
  - DEATH [None]
